FAERS Safety Report 18505104 (Version 1)
Quarter: 2020Q4

REPORT INFORMATION
  Report Type: Spontaneous
  Country: RO (occurrence: RO)
  Receive Date: 20201116
  Receipt Date: 20201116
  Transmission Date: 20210114
  Serious: Yes (Other)
  Sender: FDA-Public Use
  Company Number: RO-009507513-2011ROM007149

PATIENT
  Age: 69 Year
  Sex: Male

DRUGS (1)
  1. PEMBROLIZUMAB. [Suspect]
     Active Substance: PEMBROLIZUMAB
     Indication: LUNG ADENOCARCINOMA STAGE IV
     Dosage: FLAT DOSE 200MG/21 DAYS
     Dates: start: 201904, end: 2019

REACTIONS (11)
  - Therapy partial responder [Unknown]
  - Oedema peripheral [Unknown]
  - Hepatocellular injury [Unknown]
  - Acidosis [Unknown]
  - Fatigue [Unknown]
  - Pneumonitis [Unknown]
  - Abdominal pain upper [Unknown]
  - Vena cava injury [Unknown]
  - Cardiac tamponade [Unknown]
  - Hepatitis [Unknown]
  - Dyspnoea exertional [Unknown]

NARRATIVE: CASE EVENT DATE: 2019
